FAERS Safety Report 7678318-9 (Version None)
Quarter: 2011Q3

REPORT INFORMATION
  Report Type: 
  Country: None (occurrence: None)
  Receive Date: 20110811
  Receipt Date: 20110808
  Transmission Date: 20111222
  Serious: Yes (Death, Hospitalization, Other)
  Sender: FDA-Public Use
  Company Number: GB-ROXANE LABORATORIES, INC.-2011-RO-01128RO

PATIENT
  Age: 26 Year
  Sex: Male

DRUGS (5)
  1. LIDOCAINE [Suspect]
  2. DIAZEPAM [Suspect]
     Indication: CONVULSION
     Dosage: 20 MG
  3. COCAINE [Suspect]
     Indication: SUBSTANCE ABUSE
  4. PHENYTOIN [Suspect]
     Indication: CONVULSION
  5. CARBAMAZEPINE [Suspect]
     Indication: CONVULSION
     Dosage: 400 MG

REACTIONS (6)
  - INSOMNIA [None]
  - CARDIAC ARREST [None]
  - ACIDOSIS [None]
  - STATUS EPILEPTICUS [None]
  - GAIT DISTURBANCE [None]
  - DIZZINESS [None]
